FAERS Safety Report 24298209 (Version 1)
Quarter: 2024Q3

REPORT INFORMATION
  Report Type: Spontaneous
  Country: JP (occurrence: JP)
  Receive Date: 20240909
  Receipt Date: 20240909
  Transmission Date: 20241017
  Serious: Yes (Death, Hospitalization, Other)
  Sender: CHEPLAPHARM
  Company Number: JP-MTPC-MTPC2020-0061952AA

PATIENT
  Age: 25 Year
  Sex: Female

DRUGS (9)
  1. GANCICLOVIR [Suspect]
     Active Substance: GANCICLOVIR
     Indication: Product used for unknown indication
     Dosage: IV DRIP
     Route: 042
  2. VALGANCICLOVIR [Suspect]
     Active Substance: VALGANCICLOVIR
     Indication: Stem cell transplant
     Dosage: 450 MILLIGRAM 2 TIMES A DAY?DAILY DOSE: 900 MILLIGRAM
     Route: 048
  3. VALGANCICLOVIR [Suspect]
     Active Substance: VALGANCICLOVIR
     Indication: Stem cell transplant
     Dosage: DAILY DOSE: 450 MILLIGRAM
     Route: 048
  4. AMBISOME [Suspect]
     Active Substance: AMPHOTERICIN B
     Indication: Product used for unknown indication
     Dosage: IV DRIP
     Route: 042
  5. VORICONAZOLE [Suspect]
     Active Substance: VORICONAZOLE
     Indication: Product used for unknown indication
     Dosage: UNK
     Route: 048
  6. PREVYMIS [Concomitant]
     Active Substance: LETERMOVIR
     Indication: Product used for unknown indication
     Dosage: UNK
  7. PREDONINE [Concomitant]
     Active Substance: PREDNISOLONE
     Indication: Product used for unknown indication
     Dosage: UNK
  8. VITAMIN C [Concomitant]
     Active Substance: ASCORBIC ACID
     Indication: Product used for unknown indication
  9. ZOVIRAX [Concomitant]
     Active Substance: ACYCLOVIR
     Indication: Product used for unknown indication
     Route: 048

REACTIONS (14)
  - Fungal infection [Fatal]
  - Red blood cell count decreased [Unknown]
  - Platelet count decreased [Unknown]
  - Mucormycosis [Unknown]
  - Pneumocystis jirovecii pneumonia [Unknown]
  - Lymphopenia [Unknown]
  - Staphylococcal infection [Unknown]
  - Leukaemia [Unknown]
  - Platelet transfusion [Unknown]
  - Red blood cell transfusion [Unknown]
  - Myelosuppression [Unknown]
  - Hepatic hypertrophy [Unknown]
  - Neutrophil count decreased [Unknown]
  - Dyspnoea [Unknown]
